FAERS Safety Report 13511283 (Version 1)
Quarter: 2017Q2

REPORT INFORMATION
  Report Type: Spontaneous
  Country: US (occurrence: US)
  Receive Date: 20170503
  Receipt Date: 20170503
  Transmission Date: 20170830
  Serious: Yes (Hospitalization)
  Sender: FDA-Public Use
  Company Number: None

PATIENT
  Age: 64 Year
  Sex: Female

DRUGS (2)
  1. OCALIVA [Suspect]
     Active Substance: OBETICHOLIC ACID
     Indication: BILIARY CIRRHOSIS PRIMARY
     Route: 048
     Dates: start: 20170203, end: 201704
  2. URSODIOL. [Concomitant]
     Active Substance: URSODIOL

REACTIONS (3)
  - Drug ineffective [None]
  - Asthenia [None]
  - Pruritus [None]

NARRATIVE: CASE EVENT DATE: 201704
